APPROVED DRUG PRODUCT: NORPLANT SYSTEM IN PLASTIC CONTAINER
Active Ingredient: LEVONORGESTREL
Strength: 36MG/IMPLANT
Dosage Form/Route: IMPLANT;IMPLANTATION
Application: N020088 | Product #001
Applicant: WYETH PHARMACEUTICALS INC
Approved: Dec 10, 1990 | RLD: No | RS: No | Type: DISCN